FAERS Safety Report 14011529 (Version 1)
Quarter: 2017Q3

REPORT INFORMATION
  Report Type: Report from Study
  Country: US (occurrence: US)
  Receive Date: 20170926
  Receipt Date: 20170926
  Transmission Date: 20171128
  Serious: Yes (Death)
  Sender: FDA-Public Use
  Company Number: US-ASTRAZENECA-2017SE96759

PATIENT
  Age: 31914 Day
  Sex: Male
  Weight: 53.5 kg

DRUGS (4)
  1. ALBUTEROL. [Concomitant]
     Active Substance: ALBUTEROL
     Indication: DYSPNOEA
     Dosage: 0.63MG AS REQUIRED
     Route: 055
  2. POTASSIUM [Concomitant]
     Active Substance: POTASSIUM
     Dosage: 20.0MEQ AS REQUIRED
     Route: 048
  3. TAGRISSO [Suspect]
     Active Substance: OSIMERTINIB
     Indication: PROSTATOMEGALY
     Route: 048
     Dates: start: 201705
  4. TAGRISSO [Suspect]
     Active Substance: OSIMERTINIB
     Indication: LOWER URINARY TRACT SYMPTOMS
     Route: 048
     Dates: start: 201705

REACTIONS (1)
  - Death [Fatal]

NARRATIVE: CASE EVENT DATE: 20170916
